APPROVED DRUG PRODUCT: HYDRALAZINE HYDROCHLORIDE
Active Ingredient: HYDRALAZINE HYDROCHLORIDE
Strength: 20MG/ML
Dosage Form/Route: INJECTABLE;INJECTION
Application: A203110 | Product #001
Applicant: PHARMOBEDIENT CONSULTING LLC
Approved: Jun 29, 2015 | RLD: No | RS: No | Type: DISCN